FAERS Safety Report 18017879 (Version 1)
Quarter: 2020Q3

REPORT INFORMATION
  Report Type: Other
  Country: IT (occurrence: IT)
  Receive Date: 20200713
  Receipt Date: 20200713
  Transmission Date: 20201103
  Serious: Yes (Death, Other)
  Sender: FDA-Public Use
  Company Number: IT-ROCHE-2639652

PATIENT

DRUGS (4)
  1. CYCLOPHOSPHAMIDE. [Suspect]
     Active Substance: CYCLOPHOSPHAMIDE
     Indication: ACUTE LYMPHOCYTIC LEUKAEMIA
     Route: 065
  2. MYCOPHENOLATE MOFETIL. [Suspect]
     Active Substance: MYCOPHENOLATE MOFETIL
     Indication: PROPHYLAXIS AGAINST GRAFT VERSUS HOST DISEASE
     Route: 065
  3. PREDNISONE. [Suspect]
     Active Substance: PREDNISONE
     Indication: PROPHYLAXIS AGAINST GRAFT VERSUS HOST DISEASE
     Route: 065
  4. BUSULFAN. [Suspect]
     Active Substance: BUSULFAN
     Indication: ACUTE LYMPHOCYTIC LEUKAEMIA
     Route: 065

REACTIONS (14)
  - Soft tissue infection [Unknown]
  - Bacterial infection [Unknown]
  - Mucosal inflammation [Unknown]
  - Brain abscess [Unknown]
  - Fungal infection [Unknown]
  - Viral infection [Unknown]
  - Sepsis [Unknown]
  - Cholangitis [Unknown]
  - Enterocolitis [Unknown]
  - Opportunistic infection [Unknown]
  - Biliary tract infection [Unknown]
  - Infection [Fatal]
  - Pneumonia [Unknown]
  - Bronchopulmonary aspergillosis [Unknown]
